FAERS Safety Report 14394110 (Version 1)
Quarter: 2018Q1

REPORT INFORMATION
  Report Type: Spontaneous
  Country: US (occurrence: US)
  Receive Date: 20180116
  Receipt Date: 20180116
  Transmission Date: 20180509
  Serious: No
  Sender: FDA-Public Use
  Company Number: US-REGENERON PHARMACEUTICALS, INC.-2017-14883

PATIENT

DRUGS (2)
  1. VALIUM [Concomitant]
     Active Substance: DIAZEPAM
     Indication: PRODUCT USED FOR UNKNOWN INDICATION
  2. EYLEA [Suspect]
     Active Substance: AFLIBERCEPT
     Indication: DIABETIC RETINOPATHY
     Dosage: 2 MG MILLIGRAM(S), FIRST INJECTION
     Route: 031
     Dates: start: 20170419

REACTIONS (5)
  - Nasal congestion [Unknown]
  - Hypersensitivity [Unknown]
  - Eye irritation [Recovered/Resolved]
  - Sinus disorder [Unknown]
  - Procedural anxiety [Not Recovered/Not Resolved]

NARRATIVE: CASE EVENT DATE: 20170419
